FAERS Safety Report 12163792 (Version 5)
Quarter: 2017Q2

REPORT INFORMATION
  Report Type: Report from Study
  Country: US (occurrence: US)
  Receive Date: 20160309
  Receipt Date: 20170526
  Transmission Date: 20170830
  Serious: Yes (Hospitalization, Other)
  Sender: FDA-Public Use
  Company Number: US-BIOGEN-2005BI021777

PATIENT
  Age: 70 Year
  Sex: Female

DRUGS (4)
  1. AVONEX [Suspect]
     Active Substance: INTERFERON BETA-1A
     Route: 030
     Dates: start: 20020301
  2. AVONEX [Suspect]
     Active Substance: INTERFERON BETA-1A
     Route: 030
  3. AVONEX [Suspect]
     Active Substance: INTERFERON BETA-1A
     Indication: MULTIPLE SCLEROSIS
     Route: 030
  4. AVONEX [Suspect]
     Active Substance: INTERFERON BETA-1A
     Route: 030
     Dates: start: 20000301

REACTIONS (18)
  - Depression [Recovered/Resolved]
  - Malaise [Recovered/Resolved]
  - Post procedural haematoma [Recovered/Resolved]
  - Lumbar spinal stenosis [Recovered/Resolved]
  - Gait disturbance [Not Recovered/Not Resolved]
  - Memory impairment [Not Recovered/Not Resolved]
  - Hallucination [Recovered/Resolved]
  - Stress [Not Recovered/Not Resolved]
  - Cervical spinal stenosis [Recovered/Resolved]
  - Drug administered at inappropriate site [Not Recovered/Not Resolved]
  - Sinusitis [Not Recovered/Not Resolved]
  - Serotonin syndrome [Recovered/Resolved]
  - Multiple sclerosis relapse [Recovered/Resolved]
  - Breast cancer stage II [Recovered/Resolved]
  - Upper limb fracture [Recovered/Resolved]
  - Balance disorder [Not Recovered/Not Resolved]
  - Asthenia [Unknown]
  - Anxiety [Not Recovered/Not Resolved]

NARRATIVE: CASE EVENT DATE: 2005
